FAERS Safety Report 6110845-8 (Version None)
Quarter: 2009Q1

REPORT INFORMATION
  Report Type: 
  Country: None (occurrence: None)
  Receive Date: 20090309
  Receipt Date: 20090223
  Transmission Date: 20090719
  Serious: Yes (Hospitalization)
  Sender: FDA-Public Use
  Company Number: KV200900216

PATIENT
  Age: 75 Year
  Sex: Male

DRUGS (4)
  1. NITROQUICK     (NITROGLYCERIN) [Suspect]
     Indication: ANGINA PECTORIS
     Dosage: 0.4 MG PM CHEST PAIN, SUBLINGUAL
     Route: 060
     Dates: start: 20090219
  2. DIGOXIN [Concomitant]
  3. IMDUR [Concomitant]
  4. LOPRESSOR [Concomitant]

REACTIONS (2)
  - CHEST PAIN [None]
  - DRUG INEFFECTIVE [None]
